FAERS Safety Report 7365976-1 (Version None)
Quarter: 2011Q1

REPORT INFORMATION
  Report Type: 
  Country: None (occurrence: None)
  Receive Date: 20110309
  Receipt Date: 20110223
  Transmission Date: 20110831
  Serious: Yes (Hospitalization)
  Sender: FDA-Public Use
  Company Number: JPI-P-009764

PATIENT
  Age: 39 Year
  Sex: Female
  Weight: 56.6996 kg

DRUGS (11)
  1. SERTRALINE HYDROCHLORIDE [Concomitant]
  2. TAPENTADOL [Concomitant]
  3. DULOXETINE HYDROCHLORIDE [Concomitant]
  4. ALPRAZOLAM [Suspect]
     Indication: PANIC ATTACK
     Dosage: 3 MG (1 MG, 3 IN 1 D),
     Dates: start: 20080101, end: 20110130
  5. AMPHETAMINE AND DEXTROAMPHETAMINE SALTS [Concomitant]
  6. XYREM [Suspect]
     Indication: CATAPLEXY
     Dosage: SEE IMAGE: ORAL
     Route: 048
     Dates: start: 20100122, end: 20100201
  7. XYREM [Suspect]
     Indication: CATAPLEXY
     Dosage: SEE IMAGE: ORAL
     Route: 048
     Dates: start: 20110201
  8. XYREM [Suspect]
     Indication: CATAPLEXY
     Dosage: SEE IMAGE: ORAL
     Route: 048
     Dates: start: 20110205, end: 20110201
  9. XYREM [Suspect]
     Indication: CATAPLEXY
     Dosage: SEE IMAGE: ORAL
     Route: 048
     Dates: start: 20110108, end: 20110101
  10. XYREM [Suspect]
     Indication: CATAPLEXY
     Dosage: SEE IMAGE: ORAL
     Route: 048
     Dates: start: 20101215, end: 20110107
  11. LEVOTHYROXINE SODIUM [Concomitant]

REACTIONS (11)
  - SCREAMING [None]
  - INSOMNIA [None]
  - DETOXIFICATION [None]
  - ABNORMAL DREAMS [None]
  - SOMNAMBULISM [None]
  - HEADACHE [None]
  - HYPOAESTHESIA [None]
  - WEIGHT INCREASED [None]
  - SLEEP TALKING [None]
  - PALPITATIONS [None]
  - HALLUCINATION [None]
